FAERS Safety Report 7437419-0 (Version None)
Quarter: 2011Q2

REPORT INFORMATION
  Report Type: 
  Country: None (occurrence: None)
  Receive Date: 20110426
  Receipt Date: 20110413
  Transmission Date: 20111010
  Serious: Yes (Hospitalization)
  Sender: FDA-Public Use
  Company Number: US-BAXTER-2011BH004040

PATIENT
  Age: 6 Year
  Sex: Female
  Weight: 23 kg

DRUGS (14)
  1. IMMUNOGLOBULIN HUMAN NORMAL [Concomitant]
     Indication: HYPOGAMMAGLOBULINAEMIA
     Route: 042
  2. ZOFRAN [Concomitant]
     Indication: PREMEDICATION
     Route: 048
     Dates: start: 20090101
  3. SINGULAIR [Concomitant]
     Indication: ASTHMA
     Route: 048
  4. FLOVENT [Concomitant]
     Indication: ASTHMA
     Route: 055
     Dates: start: 20050101
  5. GAMMAGARD LIQUID [Suspect]
     Indication: HYPOGAMMAGLOBULINAEMIA
     Route: 042
     Dates: start: 20090811
  6. XOPENEX [Concomitant]
     Indication: ASTHMA
     Route: 055
  7. NASONEX [Concomitant]
     Indication: ASTHMA
     Route: 045
  8. ACETAMINOPHEN [Concomitant]
     Indication: PREMEDICATION
     Route: 048
  9. MOTRIN [Concomitant]
     Indication: PREMEDICATION
     Route: 048
  10. LEVOCARNIFINE [Concomitant]
     Indication: PRODUCT USED FOR UNKNOWN INDICATION
     Route: 048
     Dates: start: 20100101
  11. GAMMAGARD LIQUID [Suspect]
     Route: 042
     Dates: start: 20100924, end: 20100924
  12. GAMMAGARD LIQUID [Suspect]
     Route: 042
     Dates: start: 20110114, end: 20110114
  13. M.V.I. [Concomitant]
     Indication: PRODUCT USED FOR UNKNOWN INDICATION
     Route: 048
  14. EMLA [Concomitant]
     Indication: PREMEDICATION
     Route: 061

REACTIONS (1)
  - URTICARIA [None]
